FAERS Safety Report 10233630 (Version 2)
Quarter: 2014Q2

REPORT INFORMATION
  Report Type: Spontaneous
  Country: IT (occurrence: None)
  Receive Date: 20140610
  Receipt Date: 20140623
  Transmission Date: 20141212
  Serious: Yes (Life-Threatening)
  Sender: FDA-Public Use
  Company Number: FK201401407

PATIENT
  Age: 53 Year
  Sex: Male

DRUGS (10)
  1. PIPERACILLIN/TAZOBACTAM [Suspect]
     Indication: KLEBSIELLA INFECTION
     Route: 042
     Dates: start: 20140306, end: 20140320
  2. ERTAPENEM SODIUM [Suspect]
     Indication: KLEBSIELLA INFECTION
     Route: 042
     Dates: start: 20140310, end: 20140402
  3. TYGACIL (TIGECYCLINE) (TIGECYCLINE) [Concomitant]
  4. MERREM (MEROPENEM TRIHYDRATE) (MEROPENEM TRIHYDRATE) [Concomitant]
  5. CELLCEPT (MYCOPHENOLATE MOFETIL) (MYCOPHENOLATE MOFETIL) [Concomitant]
  6. SANDIMMUN NEORAL (CICLOSPORIN) (CICLOSPORIN) [Concomitant]
  7. URBASON (METHYLPREDNISOLONE) (METHYLPREDNISOLONE) [Concomitant]
  8. TIGECYCLINE (TIGECYCLINE) (TIGECYCLINE) [Concomitant]
  9. MEROPENEM (MEROPENEM) (MEROPENEM) [Concomitant]
  10. COLISTIN (COLISTIN) (COLISTIN) [Concomitant]

REACTIONS (4)
  - Leukopenia [None]
  - Thrombocytopenia [None]
  - Apparent life threatening event [None]
  - Sepsis [None]
